FAERS Safety Report 5130470-5 (Version None)
Quarter: 2006Q4

REPORT INFORMATION
  Report Type: 
  Country: None (occurrence: None)
  Receive Date: 20061018
  Receipt Date: 20061018
  Transmission Date: 20070319
  Serious: Yes (Life-Threatening, Other)
  Sender: FDA-Public Use
  Company Number: None

PATIENT
  Sex: Female
  Weight: 71.6683 kg

DRUGS (5)
  1. TAXOL [Suspect]
     Indication: ADENOCARCINOMA
     Dosage: 175MG/M2 IN 250 MLS  X1 IV X 3HRS
     Route: 042
     Dates: start: 20060727
  2. DECADRON [Concomitant]
  3. PEPCID [Concomitant]
  4. ZOFRAN [Concomitant]
  5. BENADRYL [Concomitant]

REACTIONS (5)
  - BLOOD PRESSURE SYSTOLIC INCREASED [None]
  - HYPERHIDROSIS [None]
  - MALAISE [None]
  - PALLOR [None]
  - URINARY INCONTINENCE [None]
